FAERS Safety Report 4769860-9 (Version None)
Quarter: 2005Q3

REPORT INFORMATION
  Report Type: 
  Country: None (occurrence: None)
  Receive Date: 20050912
  Receipt Date: 20050720
  Transmission Date: 20060218
  Serious: No
  Sender: FDA-Public Use
  Company Number: 2005-01452

PATIENT
  Age: 67 Year
  Sex: Male
  Weight: 68 kg

DRUGS (5)
  1. VELCADE [Suspect]
     Indication: MULTIPLE MYELOMA
     Dosage: 2.30 MG, 2/WEEK, INTRAVENOUS ; 1.80 MG, 2/WEEK,INTRANVENOUS
     Route: 042
     Dates: start: 20050201, end: 20050601
  2. VELCADE [Suspect]
     Indication: MULTIPLE MYELOMA
     Dosage: 2.30 MG, 2/WEEK, INTRAVENOUS ; 1.80 MG, 2/WEEK,INTRANVENOUS
     Route: 042
     Dates: start: 20050701
  3. AREDIA [Concomitant]
  4. DEXAMETHASONE [Concomitant]
  5. PROCRIT [Concomitant]

REACTIONS (1)
  - NEUROPATHY PERIPHERAL [None]
